FAERS Safety Report 8708550 (Version 5)
Quarter: 2013Q1

REPORT INFORMATION
  Report Type: Report from Study
  Country: CA (occurrence: CA)
  Receive Date: 20120806
  Receipt Date: 20130326
  Transmission Date: 20140127
  Serious: Yes (Other)
  Sender: FDA-Public Use
  Company Number: PHHO2012CA011233

PATIENT
  Sex: Male
  Weight: 86 kg

DRUGS (5)
  1. FTY [Suspect]
     Indication: MULTIPLE SCLEROSIS
     Dosage: 0.5 MG, QD
     Route: 048
     Dates: start: 20110418, end: 20120723
  2. FTY [Suspect]
     Dosage: 0.5 MG, QD
     Route: 048
     Dates: start: 20120729, end: 20121005
  3. VALSARTAN/HYDROCHLOORTHIAZIDE [Concomitant]
     Indication: HYPERTENSION
     Dosage: 160/145 MG
     Dates: start: 20070330
  4. SOLUTRICINE [Concomitant]
     Indication: NEUROGENIC BLADDER
     Dosage: 5 MG, UNK
     Route: 065
     Dates: start: 20110623
  5. TAMSULOSIN [Concomitant]
     Indication: BENIGN PROSTATIC HYPERPLASIA
     Dosage: 0.4 MG, UNK
     Route: 065
     Dates: start: 2006

REACTIONS (1)
  - Neoplasm progression [Recovered/Resolved]
